FAERS Safety Report 8539452-4 (Version None)
Quarter: 2012Q3

REPORT INFORMATION
  Report Type: 
  Country: None (occurrence: None)
  Receive Date: 20120726
  Receipt Date: 20120717
  Transmission Date: 20120928
  Serious: Yes (Other)
  Sender: FDA-Public Use
  Company Number: US-CELGENEUS-163-21880-12071907

PATIENT
  Sex: Male
  Weight: 70.37 kg

DRUGS (10)
  1. ALLOPURINOL [Concomitant]
     Dosage: 100 MILLIGRAM
     Route: 048
  2. LASIX [Concomitant]
     Dosage: 20 MILLIGRAM
     Route: 048
  3. REVLIMID [Suspect]
     Dosage: 5 MILLIGRAM
     Route: 048
     Dates: start: 20100601
  4. ANDRODERM [Concomitant]
     Dosage: 2.5 MILLIGRAM
     Route: 065
  5. LYRICA [Concomitant]
     Dosage: 25 MILLIGRAM
     Route: 048
  6. ASPIRIN [Concomitant]
     Dosage: 81 MILLIGRAM
     Route: 048
  7. OMEPRAZOLE [Concomitant]
     Dosage: 20 MILLIGRAM
     Route: 048
  8. TRAMADOL HCL [Concomitant]
     Dosage: 50 MILLIGRAM
     Route: 048
  9. REVLIMID [Suspect]
     Indication: MYELOFIBROSIS
     Dosage: 10 MILLIGRAM
     Route: 048
     Dates: start: 20100101
  10. MULTIVITAMIN WITH IRON [Concomitant]
     Route: 048

REACTIONS (1)
  - SQUAMOUS CELL CARCINOMA OF SKIN [None]
